FAERS Safety Report 8290327-8 (Version None)
Quarter: 2012Q2

REPORT INFORMATION
  Report Type: 
  Country: None (occurrence: None)
  Receive Date: 20120413
  Receipt Date: 20120413
  Transmission Date: 20120825
  Serious: Yes (Other)
  Sender: FDA-Public Use
  Company Number: None

PATIENT
  Sex: Female
  Weight: 63.5036 kg

DRUGS (1)
  1. SORIATANE [Suspect]
     Indication: PSORIASIS
     Dosage: 10 MG 1 PER DAY ORAL
     Route: 048
     Dates: start: 20120323, end: 20120327

REACTIONS (3)
  - PRESYNCOPE [None]
  - NAUSEA [None]
  - VISION BLURRED [None]
